FAERS Safety Report 10195133 (Version 2)
Quarter: 2014Q2

REPORT INFORMATION
  Report Type: Spontaneous
  Country: US (occurrence: US)
  Receive Date: 20140526
  Receipt Date: 20140528
  Transmission Date: 20141212
  Serious: No
  Sender: FDA-Public Use
  Company Number: US-PFIZER INC-2014141300

PATIENT
  Age: 67 Year
  Sex: Female
  Weight: 53.52 kg

DRUGS (5)
  1. LIPITOR [Suspect]
     Dosage: 20 MG (BY CUTTING 40MG ORAL TABLET INTO HALF), 1X/DAY
     Route: 048
  2. SYNTHROID [Concomitant]
     Dosage: 0.0375 MG, 1X/DAY
  3. ELAVIL [Concomitant]
     Dosage: 75 MG, 1X/DAY
  4. ZETIA [Concomitant]
     Dosage: 10 MG, 1X/DAY
  5. KLONOPIN [Concomitant]
     Dosage: 0.5 MG, 1X/DAY

REACTIONS (1)
  - Blood glucose increased [Unknown]
